FAERS Safety Report 6581003-8 (Version None)
Quarter: 2010Q1

REPORT INFORMATION
  Report Type: 
  Country: None (occurrence: None)
  Receive Date: 20100215
  Receipt Date: 20100204
  Transmission Date: 20100710
  Serious: Yes (Hospitalization)
  Sender: FDA-Public Use
  Company Number: PL-AMGEN-US392472

PATIENT
  Sex: Female

DRUGS (3)
  1. ENBREL [Suspect]
     Indication: JUVENILE ARTHRITIS
     Dosage: UNSPECIFIED DOSE GIVEN 2X/WEEK
     Route: 058
     Dates: start: 20050101, end: 20080101
  2. DICLOFENAC [Concomitant]
     Indication: JUVENILE ARTHRITIS
     Dosage: 50 MG, FREQUENCY UNKNOWN
     Route: 048
  3. ENCORTON [Concomitant]
     Indication: JUVENILE ARTHRITIS
     Route: 048

REACTIONS (2)
  - CATARACT [None]
  - UVEITIS [None]
